FAERS Safety Report 7819891-7 (Version None)
Quarter: 2011Q4

REPORT INFORMATION
  Report Type: 
  Country: None (occurrence: None)
  Receive Date: 20111018
  Receipt Date: 20101118
  Transmission Date: 20120403
  Serious: No
  Sender: FDA-Public Use
  Company Number: US-ASTRAZENECA-2010SE47098

PATIENT
  Sex: Female

DRUGS (2)
  1. SYMBICORT [Suspect]
     Dosage: 160/ 4.5 2 PUFFS BID
     Route: 055
     Dates: start: 20090501
  2. OTHER INHALERS [Concomitant]

REACTIONS (1)
  - TREATMENT NONCOMPLIANCE [None]
